FAERS Safety Report 7619247-6 (Version None)
Quarter: 2011Q3

REPORT INFORMATION
  Report Type: 
  Country: None (occurrence: None)
  Receive Date: 20110718
  Receipt Date: 20110707
  Transmission Date: 20111222
  Serious: Yes (Other)
  Sender: FDA-Public Use
  Company Number: US-ASTRAZENECA-2011SE40758

PATIENT
  Age: 50 Year
  Sex: Female

DRUGS (4)
  1. THYROID MEDICATION [Concomitant]
     Indication: THYROID DISORDER
     Dosage: DAILY
     Route: 048
  2. REQUIP [Concomitant]
     Indication: MENTAL DISORDER
     Dosage: AS NEEDED
     Route: 048
  3. HYDROCODONE [Concomitant]
     Indication: PAIN
     Dosage: AS NEEDED
     Route: 048
     Dates: start: 20110701
  4. SEROQUEL [Suspect]
     Indication: BIPOLAR DISORDER
     Route: 048
     Dates: start: 20060101

REACTIONS (4)
  - DYSKINESIA [None]
  - BREAST CANCER [None]
  - TOOTH EXTRACTION [None]
  - MUSCLE TWITCHING [None]
